FAERS Safety Report 23627377 (Version 1)
Quarter: 2024Q1

REPORT INFORMATION
  Report Type: Spontaneous
  Country: FR (occurrence: FR)
  Receive Date: 20240313
  Receipt Date: 20240313
  Transmission Date: 20240410
  Serious: Yes (Death, Other)
  Sender: FDA-Public Use
  Company Number: None

PATIENT

DRUGS (11)
  1. FOSCAVIR [Suspect]
     Active Substance: FOSCARNET SODIUM
     Indication: Cytomegalovirus infection
     Dosage: UNK UNK
     Dates: start: 20130319, end: 20130329
  2. NOXAFIL [Suspect]
     Active Substance: POSACONAZOLE
     Indication: Gastrointestinal candidiasis
     Dosage: UNK UNK
     Dates: start: 20130314, end: 20130328
  3. PIPERACILLIN SODIUM\TAZOBACTAM SODIUM [Suspect]
     Active Substance: PIPERACILLIN SODIUM\TAZOBACTAM SODIUM
     Indication: Cystitis escherichia
     Dosage: UNK UNK
     Route: 042
     Dates: start: 20130212, end: 20130403
  4. GANCICLOVIR [Suspect]
     Active Substance: GANCICLOVIR
     Indication: Cytomegalovirus infection
     Dosage: UNK UNK
     Route: 042
     Dates: start: 20130330
  5. CELLCEPT [Suspect]
     Active Substance: MYCOPHENOLATE MOFETIL
     Indication: Graft versus host disease
     Dosage: UNK UNK
     Dates: start: 20130320
  6. CANCIDAS [Suspect]
     Active Substance: CASPOFUNGIN ACETATE
     Indication: Gastrointestinal candidiasis
     Dosage: UNK UNK
     Dates: start: 20130328
  7. SOLIRIS [Suspect]
     Active Substance: ECULIZUMAB
     Indication: Haemolytic uraemic syndrome
     Dosage: UNK UNK
     Route: 041
     Dates: start: 20130327
  8. SOLIRIS [Suspect]
     Active Substance: ECULIZUMAB
     Dosage: UNK UNK
     Dates: start: 20130405
  9. ESOMEPRAZOLE MAGNESIUM [Suspect]
     Active Substance: ESOMEPRAZOLE\ESOMEPRAZOLE MAGNESIUM\ESOMEPRAZOLE MAGNESIUM DIHYDRATE
     Indication: Gastrooesophageal reflux disease
     Dosage: UNK UNK
     Route: 048
     Dates: start: 20130318, end: 20130401
  10. CYCLOPHOSPHAMIDE [Concomitant]
     Active Substance: CYCLOPHOSPHAMIDE
     Indication: Product used for unknown indication
  11. BUSULFAN [Concomitant]
     Active Substance: BUSULFAN
     Indication: Product used for unknown indication

REACTIONS (2)
  - Bone marrow failure [Fatal]
  - Off label use [Unknown]

NARRATIVE: CASE EVENT DATE: 20130329
